FAERS Safety Report 18937789 (Version 2)
Quarter: 2021Q1

REPORT INFORMATION
  Report Type: Report from Study
  Country: TR (occurrence: TR)
  Receive Date: 20210224
  Receipt Date: 20210312
  Transmission Date: 20210420
  Serious: Yes (Death, Hospitalization)
  Sender: FDA-Public Use
  Company Number: TR-BIOGEN-2021BI00980984

PATIENT
  Age: 7 Month

DRUGS (1)
  1. SPINRAZA [Suspect]
     Active Substance: NUSINERSEN
     Indication: SPINAL MUSCULAR ATROPHY
     Dosage: 2.4MG/ML?INTRATEKAL ENJEKSIYON I?IN ??ZELTI I?EREN FLAKON
     Route: 037

REACTIONS (4)
  - Cardiac arrest [Fatal]
  - Spinal muscular atrophy [Fatal]
  - Infection [Fatal]
  - Pneumonia [Fatal]

NARRATIVE: CASE EVENT DATE: 20210212
